FAERS Safety Report 8697978 (Version 2)
Quarter: 2013Q3

REPORT INFORMATION
  Report Type: Report from Study
  Country: ZA (occurrence: ZA)
  Receive Date: 20120801
  Receipt Date: 20130709
  Transmission Date: 20140515
  Serious: Yes (Other)
  Sender: FDA-Public Use
  Company Number: PHHY2012ZA066127

PATIENT
  Age: 72 Year
  Sex: Female

DRUGS (2)
  1. ACLASTA [Suspect]
     Indication: OSTEOPOROSIS
     Dosage: 5 MG PER 100 ML YEARLY
     Route: 042
     Dates: start: 20120711
  2. ZINC PHOSPHATE [Concomitant]

REACTIONS (11)
  - Cystitis [Recovered/Resolved]
  - Eating disorder [Unknown]
  - Spinal pain [Recovered/Resolved]
  - Syncope [Recovered/Resolved]
  - Night sweats [Unknown]
  - Flushing [Unknown]
  - Influenza [Unknown]
  - Gastrooesophageal reflux disease [Unknown]
  - Nausea [Unknown]
  - Back pain [Unknown]
  - Neck pain [Unknown]
